FAERS Safety Report 9647653 (Version 2)
Quarter: 2013Q4

REPORT INFORMATION
  Report Type: Spontaneous
  Country: IT (occurrence: IT)
  Receive Date: 20131028
  Receipt Date: 20131028
  Transmission Date: 20140711
  Serious: Yes (Hospitalization)
  Sender: FDA-Public Use
  Company Number: IT-ACCORD-020015

PATIENT
  Age: 46 Year
  Sex: Male

DRUGS (3)
  1. MYCOPHENOLATE MOFETIL [Suspect]
     Indication: RENAL TRANSPLANT
  2. TACROLIMUS [Suspect]
     Indication: RENAL TRANSPLANT
  3. BASILIXIMAB [Concomitant]
     Indication: RENAL TRANSPLANT

REACTIONS (4)
  - Deep vein thrombosis [Recovered/Resolved]
  - Cytomegalovirus infection [Recovered/Resolved]
  - Cryoglobulinaemia [Recovered/Resolved]
  - Renal failure acute [Recovered/Resolved]
